FAERS Safety Report 6888323-8 (Version None)
Quarter: 2010Q3

REPORT INFORMATION
  Report Type: 
  Country: None (occurrence: None)
  Receive Date: 20100730
  Receipt Date: 20100720
  Transmission Date: 20110219
  Serious: Yes (Other)
  Sender: FDA-Public Use
  Company Number: US-ALLERGAN-1009523US

PATIENT
  Sex: Female

DRUGS (1)
  1. BIMATOPROST [Suspect]
     Indication: GROWTH OF EYELASHES
     Dosage: UNK
     Route: 061

REACTIONS (1)
  - IRIDOCYCLITIS [None]
